FAERS Safety Report 4645294-2 (Version None)
Quarter: 2005Q2

REPORT INFORMATION
  Report Type: 
  Country: None (occurrence: None)
  Receive Date: 20050331
  Receipt Date: 20041227
  Transmission Date: 20051028
  Serious: No
  Sender: FDA-Public Use
  Company Number: 04P-163-0246435-00

PATIENT
  Age: 77 Year
  Sex: Female
  Weight: 49.8957 kg

DRUGS (10)
  1. HUMIRA [Suspect]
     Indication: RHEUMATOID ARTHRITIS
     Dosage: 40 MG, 1 IN 2 WK, SUBCUTANEOUS; SEE IMAGE
     Route: 058
     Dates: start: 20031031, end: 20041101
  2. HUMIRA [Suspect]
     Indication: RHEUMATOID ARTHRITIS
     Dosage: 40 MG, 1 IN 2 WK, SUBCUTANEOUS; SEE IMAGE
     Route: 058
     Dates: start: 20041201
  3. LISINOPRIL [Concomitant]
  4. AMLODIPINE BESYLATE [Concomitant]
  5. METOPROLOL SUCCINATE [Concomitant]
  6. COUMADIN [Concomitant]
  7. FUROSEMIDE [Concomitant]
  8. COSOPT [Concomitant]
  9. RIMEXOLONE [Concomitant]
  10. PIPEMIDIC ACID [Concomitant]

REACTIONS (6)
  - CONDITION AGGRAVATED [None]
  - INCREASED UPPER AIRWAY SECRETION [None]
  - PRURITUS [None]
  - RASH [None]
  - SINUS DISORDER [None]
  - VISION BLURRED [None]
